FAERS Safety Report 5661593-X (Version None)
Quarter: 2008Q1

REPORT INFORMATION
  Report Type: 
  Country: None (occurrence: None)
  Receive Date: 20080312
  Receipt Date: 20080305
  Transmission Date: 20080703
  Serious: Yes (Hospitalization)
  Sender: FDA-Public Use
  Company Number: CH-AVENTIS-200513983GDDC

PATIENT
  Age: 9 Year
  Sex: Male

DRUGS (4)
  1. MINIRIN [Suspect]
     Route: 045
     Dates: start: 20050414, end: 20050415
  2. MINIRIN [Suspect]
     Route: 045
     Dates: start: 20050417, end: 20050417
  3. MINIRIN [Suspect]
     Route: 045
     Dates: start: 20050418, end: 20050418
  4. MINIRIN [Suspect]
     Route: 045
     Dates: start: 20050419, end: 20050419

REACTIONS (7)
  - AGITATION [None]
  - BRAIN OEDEMA [None]
  - CONFUSIONAL STATE [None]
  - HYPONATRAEMIA [None]
  - LIVER INJURY [None]
  - PYREXIA [None]
  - RHABDOMYOLYSIS [None]
